FAERS Safety Report 9987399 (Version 2)
Quarter: 2014Q2

REPORT INFORMATION
  Report Type: Spontaneous
  Country: US (occurrence: US)
  Receive Date: 20140307
  Receipt Date: 20140509
  Transmission Date: 20141212
  Serious: Yes (Other)
  Sender: FDA-Public Use
  Company Number: US-TEVA-466410USA

PATIENT
  Sex: Male

DRUGS (2)
  1. AMIODARONE [Suspect]
     Indication: ATRIAL FIBRILLATION
     Dosage: 200 MILLIGRAM DAILY;
     Dates: start: 20131202
  2. AMIODARONE [Suspect]
     Indication: CARDIAC FAILURE CONGESTIVE

REACTIONS (3)
  - Atrial fibrillation [Unknown]
  - Drug level below therapeutic [Unknown]
  - Drug ineffective [Unknown]
